FAERS Safety Report 4438810-7 (Version None)
Quarter: 2004Q3

REPORT INFORMATION
  Report Type: 
  Country: None (occurrence: None)
  Receive Date: 20040830
  Receipt Date: 20040823
  Transmission Date: 20050211
  Serious: Yes (Death)
  Sender: FDA-Public Use
  Company Number: HQWYE590025AUG04

PATIENT
  Sex: Female

DRUGS (5)
  1. PREMPRO [Suspect]
     Indication: HORMONE REPLACEMENT THERAPY
  2. CLIMARA [Suspect]
     Indication: HORMONE REPLACEMENT THERAPY
  3. FEMHRT [Suspect]
     Indication: HORMONE REPLACEMENT THERAPY
  4. MEDROXYPROGESTERONE ACETATE [Suspect]
     Indication: HORMONE REPLACEMENT THERAPY
  5. VAGIFEM [Suspect]
     Indication: HORMONE REPLACEMENT THERAPY

REACTIONS (1)
  - OVARIAN CANCER [None]
